FAERS Safety Report 16913425 (Version 1)
Quarter: 2019Q4

REPORT INFORMATION
  Report Type: Spontaneous
  Country: TW (occurrence: TW)
  Receive Date: 20191014
  Receipt Date: 20191014
  Transmission Date: 20200122
  Serious: Yes (Other)
  Sender: FDA-Public Use
  Company Number: TW-ACCORD-156577

PATIENT
  Age: 43 Year
  Sex: Female

DRUGS (2)
  1. CISPLATIN. [Concomitant]
     Active Substance: CISPLATIN
     Indication: OVARIAN CANCER
  2. PACLITAXEL/PACLITAXEL LIPOSOME [Suspect]
     Active Substance: PACLITAXEL
     Indication: OVARIAN CLEAR CELL CARCINOMA
     Dosage: 5 CYCLE

REACTIONS (6)
  - Nail ridging [Recovering/Resolving]
  - Onycholysis [Recovering/Resolving]
  - Paronychia [Recovering/Resolving]
  - Traumatic haematoma [Recovering/Resolving]
  - Nail pigmentation [Recovering/Resolving]
  - Nail dystrophy [Recovering/Resolving]
